FAERS Safety Report 21510269 (Version 1)
Quarter: 2022Q4

REPORT INFORMATION
  Report Type: Report from Study
  Country: US (occurrence: US)
  Receive Date: 20221026
  Receipt Date: 20221026
  Transmission Date: 20230112
  Serious: Yes (Other)
  Sender: FDA-Public Use
  Company Number: US-JAZZ-2022-US-019505

PATIENT
  Sex: Male

DRUGS (3)
  1. XYWAV [Suspect]
     Active Substance: CALCIUM OXYBATE\MAGNESIUM OXYBATE\POTASSIUM OXYBATE\SODIUM OXYBATE
     Indication: Narcolepsy
     Dosage: UNK
  2. XYWAV [Suspect]
     Active Substance: CALCIUM OXYBATE\MAGNESIUM OXYBATE\POTASSIUM OXYBATE\SODIUM OXYBATE
     Indication: Cataplexy
  3. XYWAV [Suspect]
     Active Substance: CALCIUM OXYBATE\MAGNESIUM OXYBATE\POTASSIUM OXYBATE\SODIUM OXYBATE
     Indication: Somnolence

REACTIONS (11)
  - Autoimmune disorder [Unknown]
  - Systemic lupus erythematosus [Unknown]
  - Faeces discoloured [Unknown]
  - Constipation [Unknown]
  - Pre-existing condition improved [Unknown]
  - Diarrhoea [Unknown]
  - Sleep-related eating disorder [Unknown]
  - Visual impairment [Unknown]
  - Hunger [Unknown]
  - Dyspepsia [Unknown]
  - Illness [Unknown]
